FAERS Safety Report 18124631 (Version 1)
Quarter: 2020Q3

REPORT INFORMATION
  Report Type: Spontaneous
  Country: US (occurrence: US)
  Receive Date: 20200807
  Receipt Date: 20200807
  Transmission Date: 20201103
  Serious: Yes (Other)
  Sender: FDA-Public Use
  Company Number: US-PURDUE-USA-2020-0160484

PATIENT
  Sex: Female

DRUGS (3)
  1. MORPHINE SULFATE (SIMILAR TO NDA 19?516) [Suspect]
     Active Substance: MORPHINE SULFATE
     Indication: SURGERY
     Dosage: UNK
     Route: 048
  2. TRAMADOL. [Suspect]
     Active Substance: TRAMADOL
     Indication: SURGERY
     Dosage: UNK
     Route: 048
  3. HYDRODCONE BITARTRATE AND ACETAMINOPHEN TABLETS [Suspect]
     Active Substance: ACETAMINOPHEN\HYDROCODONE BITARTRATE
     Indication: SURGERY
     Dosage: UNK
     Route: 048

REACTIONS (11)
  - Fall [Unknown]
  - Cardiac disorder [Unknown]
  - Drug dependence [Unknown]
  - Joint injury [Unknown]
  - Tremor [Unknown]
  - Loss of consciousness [Unknown]
  - Unevaluable event [Unknown]
  - Muscle injury [Unknown]
  - Migraine [Unknown]
  - Trigger finger [Unknown]
  - Learning disorder [Unknown]
